FAERS Safety Report 11005949 (Version 2)
Quarter: 2015Q2

REPORT INFORMATION
  Report Type: Spontaneous
  Country: FR (occurrence: FR)
  Receive Date: 20150409
  Receipt Date: 20150420
  Transmission Date: 20150821
  Serious: Yes (Death)
  Sender: FDA-Public Use
  Company Number: FR-ASTRAZENECA-2015SE32721

PATIENT
  Sex: Male

DRUGS (6)
  1. LAROXYL [Concomitant]
     Active Substance: AMITRIPTYLINE
     Dosage: AT NIGHT
     Route: 048
     Dates: start: 201412
  2. THERALENE [Concomitant]
     Active Substance: TRIMEPRAZINE
     Route: 048
     Dates: start: 201412
  3. XEROQUEL [Suspect]
     Active Substance: QUETIAPINE FUMARATE
     Indication: BIPOLAR DISORDER
     Route: 048
     Dates: start: 2013
  4. VALIUM [Concomitant]
     Active Substance: DIAZEPAM
     Route: 048
  5. XEROQUEL [Suspect]
     Active Substance: QUETIAPINE FUMARATE
     Indication: BIPOLAR DISORDER
     Route: 048
     Dates: start: 201502
  6. TERCIAN [Concomitant]
     Active Substance: CYAMEMAZINE
     Route: 048

REACTIONS (3)
  - Death [Fatal]
  - Off label use [Not Recovered/Not Resolved]
  - Sedation [Recovered/Resolved]
